FAERS Safety Report 4726318-0 (Version None)
Quarter: 2005Q3

REPORT INFORMATION
  Report Type: 
  Country: None (occurrence: None)
  Receive Date: 20050727
  Receipt Date: 20050721
  Transmission Date: 20060218
  Serious: Yes (Hospitalization)
  Sender: FDA-Public Use
  Company Number: FR-ROCHE-411481

PATIENT
  Sex: Female
  Weight: 3 kg

DRUGS (6)
  1. VALIUM [Suspect]
     Indication: DRUG USE FOR UNKNOWN INDICATION
     Dosage: FORM: RECTAL SOLUTION
  2. THERALENE [Suspect]
     Indication: DRUG USE FOR UNKNOWN INDICATION
  3. SUBUTEX [Concomitant]
  4. OMEPRAZOLE [Concomitant]
  5. DEROXAT [Concomitant]
  6. CANNABIS [Concomitant]

REACTIONS (4)
  - CAESAREAN SECTION [None]
  - DRUG EXPOSURE DURING PREGNANCY [None]
  - FOETAL CARDIAC DISORDER [None]
  - HYPOTONIA NEONATAL [None]
